FAERS Safety Report 20875632 (Version 2)
Quarter: 2022Q3

REPORT INFORMATION
  Report Type: Spontaneous
  Country: US (occurrence: US)
  Receive Date: 20220526
  Receipt Date: 20220720
  Transmission Date: 20221026
  Serious: Yes (Other)
  Sender: FDA-Public Use
  Company Number: US-GILEAD-2022-0582870

PATIENT
  Age: 35 Year
  Sex: Male

DRUGS (2)
  1. TRUVADA [Suspect]
     Active Substance: EMTRICITABINE\TENOFOVIR DISOPROXIL FUMARATE
     Indication: HIV infection
     Dosage: UNK
     Route: 048
     Dates: start: 200806
  2. DESCOVY [Concomitant]
     Active Substance: EMTRICITABINE\TENOFOVIR ALAFENAMIDE FUMARATE

REACTIONS (8)
  - Chronic kidney disease [Not Recovered/Not Resolved]
  - Multiple fractures [Not Recovered/Not Resolved]
  - Emotional distress [Unknown]
  - Anhedonia [Unknown]
  - Tooth loss [Not Recovered/Not Resolved]
  - Bone density abnormal [Not Recovered/Not Resolved]
  - Anxiety [Unknown]
  - Pain [Unknown]

NARRATIVE: CASE EVENT DATE: 20120101
